FAERS Safety Report 7870653-4 (Version None)
Quarter: 2011Q4

REPORT INFORMATION
  Report Type: 
  Country: None (occurrence: None)
  Receive Date: 20111029
  Receipt Date: 20110221
  Transmission Date: 20120403
  Serious: No
  Sender: FDA-Public Use
  Company Number: US-AMGEN-USASP2011009864

PATIENT
  Sex: Female

DRUGS (1)
  1. ENBREL [Suspect]
     Indication: ANKYLOSING SPONDYLITIS
     Dates: start: 20081118

REACTIONS (5)
  - PAIN IN EXTREMITY [None]
  - PNEUMONIA [None]
  - TENDON OPERATION [None]
  - TENDON INJURY [None]
  - BRONCHITIS [None]
